FAERS Safety Report 5278777-5 (Version None)
Quarter: 2007Q1

REPORT INFORMATION
  Report Type: 
  Country: None (occurrence: None)
  Receive Date: 20061213
  Receipt Date: 20060109
  Transmission Date: 20070707
  Serious: No
  Sender: FDA-Public Use
  Company Number: 2006UW00303

PATIENT
  Age: 19 Year
  Sex: Male
  Weight: 66.6788 kg

DRUGS (2)
  1. SEROQUEL [Suspect]
  2. REMICADE [Suspect]
     Indication: COLITIS ULCERATIVE
     Dosage: 5 MG/KG IV
     Route: 042
     Dates: start: 20050901

REACTIONS (1)
  - GRAND MAL CONVULSION [None]
